FAERS Safety Report 12440446 (Version 1)
Quarter: 2016Q2

REPORT INFORMATION
  Report Type: Spontaneous
  Country: DE (occurrence: DE)
  Receive Date: 20160606
  Receipt Date: 20160606
  Transmission Date: 20160815
  Serious: Yes (Hospitalization)
  Sender: FDA-Public Use
  Company Number: GXKR2016DE002602

PATIENT

DRUGS (33)
  1. SEROQUEL [Suspect]
     Active Substance: QUETIAPINE FUMARATE
     Indication: PRODUCT USED FOR UNKNOWN INDICATION
     Dosage: 400 - 1200 MG
     Route: 048
     Dates: start: 2012, end: 2014
  2. FLUPHENAZINE [Suspect]
     Active Substance: FLUPHENAZINE
     Indication: PRODUCT USED FOR UNKNOWN INDICATION
     Dosage: 25 MG, BIW
     Route: 030
     Dates: start: 20130317
  3. FLUPHENAZINE [Suspect]
     Active Substance: FLUPHENAZINE
     Dosage: UNK UKN, UNK
     Dates: start: 20140328
  4. METFORMIN [Concomitant]
     Active Substance: METFORMIN HYDROCHLORIDE
     Indication: PRODUCT USED FOR UNKNOWN INDICATION
     Dosage: 2000 MG, QD
     Route: 048
     Dates: start: 2012
  5. ZUCLOPENTHIXOL [Suspect]
     Active Substance: ZUCLOPENTHIXOL
     Indication: PRODUCT USED FOR UNKNOWN INDICATION
     Dosage: 150 MG, UNK
     Route: 030
     Dates: start: 20140325
  6. DIAZEPAM. [Suspect]
     Active Substance: DIAZEPAM
     Indication: PRODUCT USED FOR UNKNOWN INDICATION
     Dosage: 15 MG, QD
     Route: 048
     Dates: start: 20140318, end: 20140319
  7. DIAZEPAM. [Suspect]
     Active Substance: DIAZEPAM
     Dosage: 25 MG, QD
     Route: 048
     Dates: start: 20140321, end: 20140322
  8. DIAZEPAM. [Suspect]
     Active Substance: DIAZEPAM
     Dosage: 20 MG, UNK
     Route: 048
     Dates: start: 20140325
  9. MAGNESIUM [Concomitant]
     Active Substance: MAGNESIUM
     Indication: PRODUCT USED FOR UNKNOWN INDICATION
     Dosage: 2 DF, UNK
     Dates: start: 20140323, end: 20140405
  10. HALOPERIDOL. [Suspect]
     Active Substance: HALOPERIDOL
     Dosage: 6 MG, QD
     Route: 048
     Dates: start: 20140403, end: 20140404
  11. SEROQUEL [Suspect]
     Active Substance: QUETIAPINE FUMARATE
     Dosage: 400 MG, QD
     Route: 048
     Dates: start: 20140310, end: 20140319
  12. QUILONUM - SLOW RELEASE [Suspect]
     Active Substance: LITHIUM CARBONATE
     Dosage: 225 MG, QD
     Route: 048
     Dates: start: 20140310, end: 20140321
  13. TORASEMIDE [Concomitant]
     Active Substance: TORSEMIDE
     Indication: PRODUCT USED FOR UNKNOWN INDICATION
     Dosage: 10 MG, QD
     Route: 048
  14. FLUNITRAZEPAM [Suspect]
     Active Substance: FLUNITRAZEPAM
     Indication: PRODUCT USED FOR UNKNOWN INDICATION
     Dosage: 1 MG, QD
     Route: 048
     Dates: start: 20140321, end: 20140323
  15. SEROQUEL [Suspect]
     Active Substance: QUETIAPINE FUMARATE
     Dosage: 800 MG, UNK
     Route: 048
     Dates: start: 20140321
  16. QUILONUM - SLOW RELEASE [Suspect]
     Active Substance: LITHIUM CARBONATE
     Indication: PRODUCT USED FOR UNKNOWN INDICATION
     Dosage: 450-900 MG FOR YEARS WITH INTERRUPTION
     Route: 048
  17. DIAZEPAM. [Suspect]
     Active Substance: DIAZEPAM
     Dosage: 35 MG, QD
     Route: 048
     Dates: start: 20140323
  18. DIAZEPAM. [Suspect]
     Active Substance: DIAZEPAM
     Dosage: 30 MG, QD
     Route: 048
     Dates: start: 20140324
  19. SPIRONOLACTONE. [Concomitant]
     Active Substance: SPIRONOLACTONE
     Indication: PRODUCT USED FOR UNKNOWN INDICATION
     Dosage: 100 MG, QD
     Route: 048
     Dates: start: 2012
  20. QUILONUM - SLOW RELEASE [Suspect]
     Active Substance: LITHIUM CARBONATE
     Dosage: DAILY DOSE: 675 MG MILLIGRAM(S) EVERY DAY
     Route: 048
  21. EUTHYROX [Concomitant]
     Active Substance: LEVOTHYROXINE SODIUM
     Indication: PRODUCT USED FOR UNKNOWN INDICATION
     Dosage: 0.075 MG, QD
     Route: 048
  22. TAMSULOSIN [Concomitant]
     Active Substance: TAMSULOSIN
     Indication: PRODUCT USED FOR UNKNOWN INDICATION
     Dosage: 0.4 MG, QD
     Route: 048
     Dates: start: 2012
  23. SEROQUEL [Suspect]
     Active Substance: QUETIAPINE FUMARATE
     Dosage: 600 MG, UNK
     Route: 048
     Dates: start: 20140320
  24. SEROQUEL [Suspect]
     Active Substance: QUETIAPINE FUMARATE
     Dosage: UNK
     Route: 048
     Dates: start: 20140322
  25. FLUPHENAZINE [Suspect]
     Active Substance: FLUPHENAZINE
     Dosage: UNK
     Dates: start: 20140311
  26. QUILONUM - SLOW RELEASE [Suspect]
     Active Substance: LITHIUM CARBONATE
     Dosage: 450 MG, QD
     Route: 048
     Dates: start: 20140322, end: 20140327
  27. DIAZEPAM. [Suspect]
     Active Substance: DIAZEPAM
     Dosage: 20 MG, UNK
     Route: 048
     Dates: start: 20140320
  28. RAMIPRIL. [Concomitant]
     Active Substance: RAMIPRIL
     Indication: PRODUCT USED FOR UNKNOWN INDICATION
     Dosage: DAILY DOSE: 2.5 MG MILLIGRAM(S) EVERY DAY
     Route: 048
     Dates: start: 2010
  29. ASPIRIN. [Concomitant]
     Active Substance: ASPIRIN
     Indication: PRODUCT USED FOR UNKNOWN INDICATION
     Dosage: 100 MG, QD
     Route: 048
  30. NEURO                              /00176001/ [Concomitant]
     Indication: PRODUCT USED FOR UNKNOWN INDICATION
     Dosage: 1 DF, UNK
     Route: 048
     Dates: start: 20140323, end: 20140405
  31. FLUNITRAZEPAM [Suspect]
     Active Substance: FLUNITRAZEPAM
     Dosage: 2 MG, QD
     Route: 048
     Dates: start: 20140324, end: 20140405
  32. HALOPERIDOL. [Suspect]
     Active Substance: HALOPERIDOL
     Indication: PRODUCT USED FOR UNKNOWN INDICATION
     Dosage: 10 MG, QD
     Route: 048
     Dates: start: 20140324, end: 20140402
  33. HALOPERIDOL. [Suspect]
     Active Substance: HALOPERIDOL
     Dosage: 4 MG, QD
     Route: 048
     Dates: start: 20140405, end: 20140406

REACTIONS (2)
  - Salivary hypersecretion [Unknown]
  - Speech disorder [Unknown]

NARRATIVE: CASE EVENT DATE: 20140325
